FAERS Safety Report 15401496 (Version 1)
Quarter: 2018Q3

REPORT INFORMATION
  Report Type: Spontaneous
  Country: US (occurrence: US)
  Receive Date: 20180919
  Receipt Date: 20180919
  Transmission Date: 20181010
  Serious: Yes (Other)
  Sender: FDA-Public Use
  Company Number: US-PURDUE PHARMA-USA-2018-0144742

PATIENT
  Age: 61 Year
  Sex: Male

DRUGS (4)
  1. OXYCONTIN [Suspect]
     Active Substance: OXYCODONE HYDROCHLORIDE
     Indication: NERVE INJURY
     Dosage: 60 MG, Q12H
     Route: 048
     Dates: start: 201808
  2. OXYCODONE                          /00045603/ [Suspect]
     Active Substance: OXYCODONE
     Indication: BREAKTHROUGH PAIN
     Dosage: 20 MG, PRN
     Route: 048
     Dates: start: 201808
  3. OXYCONTIN [Suspect]
     Active Substance: OXYCODONE HYDROCHLORIDE
     Dosage: 80 MG, Q8H
     Route: 048
     Dates: end: 201808
  4. OXYCODONE                          /00045603/ [Suspect]
     Active Substance: OXYCODONE
     Indication: NERVE INJURY

REACTIONS (5)
  - Drug ineffective [Not Recovered/Not Resolved]
  - Road traffic accident [Recovered/Resolved]
  - Off label use [Recovered/Resolved]
  - Rib fracture [Not Recovered/Not Resolved]
  - Pain [Not Recovered/Not Resolved]

NARRATIVE: CASE EVENT DATE: 201808
